FAERS Safety Report 7550276-7 (Version None)
Quarter: 2011Q2

REPORT INFORMATION
  Report Type: 
  Country: None (occurrence: None)
  Receive Date: 20110615
  Receipt Date: 20091030
  Transmission Date: 20111010
  Serious: Yes (Other)
  Sender: FDA-Public Use
  Company Number: US-BAYER-200937666NA

PATIENT
  Age: 63 Year
  Sex: Female
  Weight: 73.469 kg

DRUGS (33)
  1. TRASYLOL [Suspect]
     Indication: AORTIC VALVE REPLACEMENT
     Dosage: 200ML, THEN 50ML/HR
     Route: 042
     Dates: start: 20010912, end: 20010912
  2. TRASYLOL [Suspect]
     Indication: CORONARY ARTERY BYPASS
     Dosage: LOADING DOSE
     Route: 042
     Dates: start: 20011120
  3. RED BLOOD CELLS [Concomitant]
     Dosage: 7 U, TRANSFUSED
     Dates: start: 20010912
  4. RED BLOOD CELLS [Concomitant]
     Dosage: 2 U, PERFUSION
     Dates: start: 20020201
  5. ACETYLSALICYLIC ACID SRT [Concomitant]
     Dosage: DAILY
  6. RED BLOOD CELLS [Concomitant]
     Dosage: 2 U, UNK
     Dates: start: 20011027
  7. PLATELETS [Concomitant]
     Dosage: 2 U, TRANSFUSION
     Dates: start: 20010912
  8. PLATELETS [Concomitant]
     Dosage: 4 U, UNK
     Dates: start: 20011120
  9. FRESH FROZEN PLASMA [Concomitant]
     Dosage: 2 U, TRANSFUSION
     Dates: start: 20010912
  10. COZAAR [Concomitant]
  11. TRASYLOL [Suspect]
     Dosage: DRIP
     Route: 041
     Dates: start: 20011120, end: 20011120
  12. RED BLOOD CELLS [Concomitant]
     Dosage: 6 U, UNK
     Dates: start: 20011120
  13. RED BLOOD CELLS [Concomitant]
     Dosage: 2 U, PERFUSION
     Dates: start: 20010912
  14. WHOLE BLOOD [Concomitant]
     Dosage: 4 UNITS
     Dates: start: 20010912
  15. ANCEF [Concomitant]
     Dosage: UNK
     Dates: start: 20011001
  16. GENTAMICIN [Concomitant]
  17. CONTRAST MEDIA [Concomitant]
     Indication: CATHETERISATION CARDIAC
     Dosage: 235 ML, UNK
     Dates: start: 20010904
  18. IRBESARTAN [Concomitant]
     Dosage: 150 MG, UNK
     Route: 048
  19. INSULIN [INSULIN] [Concomitant]
     Dosage: PER PROTOCOL
     Route: 042
  20. LEVOXYL [Concomitant]
     Dosage: 0.125 MG, UNK
     Route: 048
  21. CRYOPRECIPITATES [Concomitant]
     Dosage: 4 U, UNK
     Dates: start: 20011120
  22. VERSED [Concomitant]
     Dosage: DURING SURGERY, 1-3 G
     Route: 042
  23. REGLAN [Concomitant]
     Dosage: 10 MG, DURING SURGERY
     Route: 042
  24. LIPITOR [Concomitant]
     Dosage: 10 MG, UNK
     Route: 048
  25. GLIPIZIDE [Concomitant]
     Dosage: 5 MG, UNK
     Route: 048
  26. TIAZAC [Concomitant]
     Dosage: 120 MG, UNK
     Route: 048
  27. VANCOMYCIN [Concomitant]
     Dosage: 1 G, UNK
     Route: 042
  28. PREMARIN [Concomitant]
  29. LASIX [Concomitant]
     Dosage: 40 MG, UNK
     Route: 048
  30. LASIX [Concomitant]
     Dosage: UNK
     Dates: start: 20011001
  31. POTASSIUM [POTASSIUM] [Concomitant]
     Dosage: 10 MEQ, UNK
     Route: 048
  32. POTASSIUM [POTASSIUM] [Concomitant]
     Dosage: UNK
     Dates: start: 20011001
  33. OPTIRAY 320 [IOVERSOL] [Concomitant]
     Indication: CATHETERISATION CARDIAC
     Dosage: 10 ML, UNK
     Dates: start: 20011105

REACTIONS (11)
  - EMOTIONAL DISTRESS [None]
  - ANHEDONIA [None]
  - ANXIETY [None]
  - RENAL IMPAIRMENT [None]
  - RENAL INJURY [None]
  - UNEVALUABLE EVENT [None]
  - PAIN [None]
  - RENAL FAILURE [None]
  - FEAR [None]
  - INJURY [None]
  - STRESS [None]
